FAERS Safety Report 7720932-6 (Version None)
Quarter: 2011Q3

REPORT INFORMATION
  Report Type: 
  Country: None (occurrence: None)
  Receive Date: 20110830
  Receipt Date: 20110830
  Transmission Date: 20111222
  Serious: Yes (Disabling)
  Sender: FDA-Public Use
  Company Number: None

PATIENT
  Age: 63 Year
  Sex: Female
  Weight: 81.6475 kg

DRUGS (1)
  1. ABILIFY [Suspect]
     Indication: POST-TRAUMATIC STRESS DISORDER
     Dosage: 2 WEEKS 14 TABLETS 1 DAILY
     Dates: start: 20101101, end: 20101201

REACTIONS (1)
  - PAIN IN EXTREMITY [None]
